FAERS Safety Report 25167842 (Version 1)
Quarter: 2025Q2

REPORT INFORMATION
  Report Type: Spontaneous
  Country: KR (occurrence: KR)
  Receive Date: 20250407
  Receipt Date: 20250407
  Transmission Date: 20250717
  Serious: Yes (Other)
  Sender: ROCHE
  Company Number: KR-ROCHE-10000246203

PATIENT
  Sex: Female

DRUGS (2)
  1. AVASTIN [Suspect]
     Active Substance: BEVACIZUMAB
     Indication: Cervix carcinoma
     Route: 065
  2. AVASTIN [Suspect]
     Active Substance: BEVACIZUMAB
     Route: 065

REACTIONS (10)
  - Nephrostomy [Unknown]
  - Oxygen therapy [Recovered/Resolved]
  - Tracheal aspiration procedure [Recovered/Resolved]
  - Drain placement [Recovered/Resolved]
  - Wound treatment [Unknown]
  - Inappropriate schedule of product administration [Unknown]
  - Endotracheal intubation [Unknown]
  - Gastrointestinal tube insertion [Unknown]
  - Mechanical ventilation [Recovered/Resolved]
  - Bladder catheterisation [Unknown]

NARRATIVE: CASE EVENT DATE: 20230923
